FAERS Safety Report 7427967-1 (Version None)
Quarter: 2011Q2

REPORT INFORMATION
  Report Type: 
  Country: None (occurrence: None)
  Receive Date: 20110412
  Receipt Date: 20110407
  Transmission Date: 20111010
  Serious: Yes (Other)
  Sender: FDA-Public Use
  Company Number: USA/USA/11/0017717

PATIENT
  Age: 69 Year
  Sex: Male
  Weight: 131.5431 kg

DRUGS (4)
  1. FINASTERIDE [Suspect]
     Indication: MICTURITION URGENCY
     Dosage: 5 MG, 1 IN 1 D, ORAL
     Route: 048
     Dates: start: 20110214, end: 20110217
  2. GLIPIZIDE [Concomitant]
  3. CARVEDILOL [Concomitant]
  4. AMLODIPINE [Concomitant]

REACTIONS (4)
  - BLOOD GLUCOSE INCREASED [None]
  - DYSURIA [None]
  - GOUT [None]
  - PENILE PAIN [None]
